FAERS Safety Report 10314210 (Version 2)
Quarter: 2014Q3

REPORT INFORMATION
  Report Type: Spontaneous
  Country: JP (occurrence: JP)
  Receive Date: 20140718
  Receipt Date: 20140726
  Transmission Date: 20150326
  Serious: Yes (Death, Other)
  Sender: FDA-Public Use
  Company Number: PHHY2014JP085910

PATIENT
  Age: 16 Year
  Sex: Female

DRUGS (11)
  1. DAUNOMYCIN [Suspect]
     Active Substance: DAUNORUBICIN
     Dosage: 25 MG/M2 ON DAYS 10, 11, 31, AND 32
  2. GABAPENTIN. [Suspect]
     Active Substance: GABAPENTIN
     Route: 048
  3. CYCLOPHOSPHAMIDE. [Suspect]
     Active Substance: CYCLOPHOSPHAMIDE
     Dosage: 1 G/M2 ON DAYS 9 AND 30
  4. RITUXIMAB [Suspect]
     Active Substance: RITUXIMAB
     Dosage: 375 MG/M2 ON DAYS 1 AND 11
  5. DOXORUBICIN [Suspect]
     Active Substance: DOXORUBICIN
     Dosage: 25 MG/M2 ON DAYS 4 TO 5
  6. VINCRISTINE [Suspect]
     Active Substance: VINCRISTINE
     Dosage: 1.5 MG/M2 ON DAYS 8, 15, 22, 29, AND 36
  7. BORTEZOMIB [Suspect]
     Active Substance: BORTEZOMIB
     Dosage: 1.3 MG/M2, (2 DOSES/WEEK FOR 2 WEEKS)
  8. L-ASPARAGINASE [Suspect]
     Active Substance: ASPARAGINASE
  9. PREDNISOLONE. [Suspect]
     Active Substance: PREDNISOLONE
     Dosage: 60 MG/M2 ON DAYS 1 TO 35
  10. CYTARABINE. [Suspect]
     Active Substance: CYTARABINE
  11. DEXAMETHASONE. [Suspect]
     Active Substance: DEXAMETHASONE
     Dosage: 40 MG/BODY ON DAYS 1 TO 4 AND DAYS 11 TO 14

REACTIONS (11)
  - Acute lymphocytic leukaemia recurrent [Fatal]
  - Bone marrow disorder [Unknown]
  - Haematotoxicity [Unknown]
  - Febrile neutropenia [Unknown]
  - Ventricular fibrillation [Unknown]
  - Respiratory disorder [Unknown]
  - Blood lactate dehydrogenase increased [Recovered/Resolved]
  - Renal failure acute [Unknown]
  - Blast cells present [Fatal]
  - Interstitial lung disease [Unknown]
  - Neuropathy peripheral [Unknown]
